FAERS Safety Report 7130974-X (Version None)
Quarter: 2010Q4

REPORT INFORMATION
  Report Type: 
  Country: None (occurrence: None)
  Receive Date: 20101201
  Receipt Date: 20101118
  Transmission Date: 20110411
  Serious: Yes (Hospitalization, Congenital Anomaly)
  Sender: FDA-Public Use
  Company Number: A0877369A

PATIENT

DRUGS (1)
  1. PAXIL [Suspect]

REACTIONS (10)
  - BINOCULAR EYE MOVEMENT DISORDER [None]
  - CONGENITAL ANOMALY [None]
  - CRANIOSYNOSTOSIS [None]
  - CRYPTORCHISM [None]
  - DEVELOPMENTAL DELAY [None]
  - DRUG EXPOSURE DURING PREGNANCY [None]
  - INGUINAL HERNIA [None]
  - MICROGNATHIA [None]
  - STRABISMUS [None]
  - TALIPES [None]
